FAERS Safety Report 6030358-1 (Version None)
Quarter: 2009Q1

REPORT INFORMATION
  Report Type: 
  Country: None (occurrence: None)
  Receive Date: 20090107
  Receipt Date: 20080729
  Transmission Date: 20090719
  Serious: No
  Sender: FDA-Public Use
  Company Number: US-BAYER-200813232BCC

PATIENT
  Sex: Female
  Weight: 49 kg

DRUGS (3)
  1. ALEVE [Suspect]
     Indication: OSTEOARTHRITIS
     Dosage: TOTAL DAILY DOSE: 440 MG  UNIT DOSE: 220 MG
     Route: 048
  2. KNOX NUTRAJOINT GLUCOSAMINE WITH GELATIN [Concomitant]
  3. TYLENOL (CAPLET) [Concomitant]

REACTIONS (1)
  - ERYTHEMA [None]
